FAERS Safety Report 13659143 (Version 1)
Quarter: 2017Q2

REPORT INFORMATION
  Report Type: Spontaneous
  Country: US (occurrence: US)
  Receive Date: 20170615
  Receipt Date: 20170615
  Transmission Date: 20170830
  Serious: No
  Sender: FDA-Public Use
  Company Number: None

PATIENT
  Age: 65 Year
  Sex: Female

DRUGS (1)
  1. NINLARO [Suspect]
     Active Substance: IXAZOMIB
     Indication: PLASMA CELL MYELOMA
     Dosage: 3MG 3 WEEKS ON 1 WEEK OFF ORAL
     Route: 048
     Dates: start: 20170427, end: 20170614

REACTIONS (3)
  - Pain [None]
  - Dizziness [None]
  - Peripheral swelling [None]

NARRATIVE: CASE EVENT DATE: 20170614
